FAERS Safety Report 15544956 (Version 1)
Quarter: 2018Q4

REPORT INFORMATION
  Report Type: Spontaneous
  Country: SE (occurrence: SE)
  Receive Date: 20181024
  Receipt Date: 20181024
  Transmission Date: 20190205
  Serious: Yes (Other)
  Sender: FDA-Public Use
  Company Number: SE-AUROBINDO-AUR-APL-2018-051603

PATIENT
  Age: 76 Year
  Sex: Male
  Weight: 86 kg

DRUGS (1)
  1. AMLODIPINE [Suspect]
     Active Substance: AMLODIPINE BESYLATE
     Indication: ESSENTIAL HYPERTENSION
     Dosage: 5 MILLIGRAM, DAILY
     Route: 065
     Dates: start: 2015

REACTIONS (2)
  - Prostate cancer [Not Recovered/Not Resolved]
  - Prostate cancer recurrent [Not Recovered/Not Resolved]

NARRATIVE: CASE EVENT DATE: 201806
